FAERS Safety Report 6235537-6 (Version None)
Quarter: 2009Q2

REPORT INFORMATION
  Report Type: 
  Country: None (occurrence: None)
  Receive Date: 20090618
  Receipt Date: 20081202
  Transmission Date: 20091009
  Serious: No
  Sender: FDA-Public Use
  Company Number: US-ASTRAZENECA-2008UW24850

PATIENT
  Age: 23 Year
  Sex: Female
  Weight: 49.9 kg

DRUGS (2)
  1. RHINOCORT [Suspect]
     Indication: POSTNASAL DRIP
     Dosage: 32 MCG, AS NEEDED
     Route: 045
     Dates: start: 20081030
  2. ADVAIR HFA [Concomitant]

REACTIONS (4)
  - EPISTAXIS [None]
  - HEADACHE [None]
  - MIGRAINE [None]
  - SINUS CONGESTION [None]
